FAERS Safety Report 20481649 (Version 1)
Quarter: 2022Q1

REPORT INFORMATION
  Report Type: Report from Study
  Country: US (occurrence: US)
  Receive Date: 20220216
  Receipt Date: 20220216
  Transmission Date: 20220423
  Serious: Yes (Other)
  Sender: FDA-Public Use
  Company Number: US-SHIRE-US202019956

PATIENT
  Age: 62 Year
  Sex: Female

DRUGS (1)
  1. HUMAN IMMUNOGLOBULIN G [Suspect]
     Active Substance: HUMAN IMMUNOGLOBULIN G
     Indication: Primary immunodeficiency syndrome
     Route: 065

REACTIONS (9)
  - Mycobacterium avium complex infection [Unknown]
  - Respiratory distress [Unknown]
  - Psoriasis [Unknown]
  - Pulmonary mass [Unknown]
  - Fall [Unknown]
  - Malaise [Unknown]
  - Fatigue [Unknown]
  - Inappropriate schedule of product administration [Unknown]
  - Device breakage [Unknown]

NARRATIVE: CASE EVENT DATE: 20220207
